FAERS Safety Report 17294157 (Version 1)
Quarter: 2020Q1

REPORT INFORMATION
  Report Type: Spontaneous
  Country: US (occurrence: US)
  Receive Date: 20200121
  Receipt Date: 20200121
  Transmission Date: 20200409
  Serious: No
  Sender: FDA-Public Use
  Company Number: US-SA-2020SA009976

PATIENT

DRUGS (1)
  1. ASPERCREME WITH LIDOCAINE DRY [Suspect]
     Active Substance: LIDOCAINE
     Dosage: UNK

REACTIONS (1)
  - Drug ineffective [Unknown]
